FAERS Safety Report 4504634-5 (Version None)
Quarter: 2004Q4

REPORT INFORMATION
  Report Type: 
  Country: None (occurrence: None)
  Receive Date: 20041118
  Receipt Date: 20041108
  Transmission Date: 20050328
  Serious: Yes (Other)
  Sender: FDA-Public Use
  Company Number: DE-JNJFOC-20041102400

PATIENT
  Age: 25 Year
  Sex: Male

DRUGS (4)
  1. RISPERDAL [Suspect]
     Route: 049
  2. RISPERDAL [Suspect]
     Indication: DRUG USE FOR UNKNOWN INDICATION
     Route: 049
  3. ZOLOFT [Interacting]
     Route: 049
  4. ZOLOFT [Interacting]
     Indication: DRUG USE FOR UNKNOWN INDICATION
     Route: 049

REACTIONS (6)
  - DRUG INTERACTION [None]
  - DRUG LEVEL INCREASED [None]
  - DYSKINESIA [None]
  - OROPHARYNGEAL SPASM [None]
  - SALIVARY HYPERSECRETION [None]
  - SPEECH DISORDER [None]
